FAERS Safety Report 10617929 (Version 2)
Quarter: 2015Q2

REPORT INFORMATION
  Report Type: Spontaneous
  Country: IT (occurrence: IT)
  Receive Date: 20141201
  Receipt Date: 20150409
  Transmission Date: 20150821
  Serious: Yes (Hospitalization)
  Sender: FDA-Public Use
  Company Number: IT-ABBVIE-14P-083-1314019-00

PATIENT
  Age: 32 Year
  Sex: Male

DRUGS (3)
  1. CLOPIXOL [Suspect]
     Active Substance: ZUCLOPENTHIXOL ACETATE
     Indication: SCHIZOPHRENIA
     Route: 048
     Dates: start: 20141016, end: 20141018
  2. MINIAS [Suspect]
     Active Substance: LORMETAZEPAM
     Indication: ANXIETY
     Route: 048
     Dates: start: 20141016, end: 20141018
  3. DEPAKENE [Suspect]
     Active Substance: VALPROIC ACID
     Indication: GENERALISED NON-CONVULSIVE EPILEPSY
     Dosage: EXTENDED RELEASE
     Route: 048
     Dates: start: 20141016, end: 20141018

REACTIONS (1)
  - Tongue oedema [Recovered/Resolved]

NARRATIVE: CASE EVENT DATE: 20141018
